FAERS Safety Report 6712975-6 (Version None)
Quarter: 2010Q2

REPORT INFORMATION
  Report Type: 
  Country: None (occurrence: None)
  Receive Date: 20100505
  Receipt Date: 20100505
  Transmission Date: 20101027
  Serious: Yes (Other)
  Sender: FDA-Public Use
  Company Number: None

PATIENT
  Age: 37 Year
  Sex: Male
  Weight: 81.1939 kg

DRUGS (1)
  1. RESTASIS [Suspect]
     Indication: KERATOCONJUNCTIVITIS SICCA
     Dosage: 1 DROP 2X PER DAY OPHTHALMIC
     Route: 047
     Dates: start: 20090410, end: 20090414

REACTIONS (4)
  - DRY EYE [None]
  - EYE PAIN [None]
  - HEADACHE [None]
  - INTRAOCULAR PRESSURE INCREASED [None]
